FAERS Safety Report 8376976-7 (Version None)
Quarter: 2012Q2

REPORT INFORMATION
  Report Type: 
  Country: None (occurrence: None)
  Receive Date: 20120522
  Receipt Date: 20120510
  Transmission Date: 20120825
  Serious: Yes (Other)
  Sender: FDA-Public Use
  Company Number: US-JNJFOC-20120512783

PATIENT
  Sex: Female
  Weight: 81.65 kg

DRUGS (4)
  1. OMNICEF [Suspect]
     Indication: INFECTION
     Route: 065
  2. BIAXIN [Suspect]
     Indication: INFECTION
     Route: 048
  3. REMICADE [Suspect]
     Indication: CROHN'S DISEASE
     Route: 042
     Dates: start: 20020101, end: 20110226
  4. ZITHROMAX [Suspect]
     Indication: INFECTION
     Route: 048

REACTIONS (5)
  - URINARY TRACT INFECTION [None]
  - INFECTION [None]
  - DRUG INEFFECTIVE [None]
  - FUNGAL INFECTION [None]
  - SINUSITIS [None]
